FAERS Safety Report 12009633 (Version 1)
Quarter: 2016Q1

REPORT INFORMATION
  Report Type: Spontaneous
  Country: US (occurrence: US)
  Receive Date: 20160205
  Receipt Date: 20160205
  Transmission Date: 20160526
  Serious: No
  Sender: FDA-Public Use
  Company Number: US-PFIZER INC-2016067679

PATIENT
  Age: 68 Year
  Sex: Female
  Weight: 58.6 kg

DRUGS (4)
  1. IBRANCE [Suspect]
     Active Substance: PALBOCICLIB
     Indication: BLOOD OESTROGEN INCREASED
     Dosage: 125MG CAPSULE, ONE PILL FOR 21 DAYS, THEN OFF 7 DAYS
     Dates: start: 20151111
  2. NORVASC [Concomitant]
     Active Substance: AMLODIPINE BESYLATE
     Indication: HYPERTENSION
     Dosage: 5 MG, 1X/DAY
     Dates: start: 201510
  3. TYLENOL [Concomitant]
     Active Substance: ACETAMINOPHEN
     Indication: PAIN
     Dosage: UNK, AS NEEDED
  4. LETROZOLE. [Concomitant]
     Active Substance: LETROZOLE
     Indication: BLOOD OESTROGEN INCREASED
     Dosage: 2.5MG TABLET BY MOUTH EVERY DAY
     Route: 048
     Dates: start: 20151111

REACTIONS (2)
  - Pain [Not Recovered/Not Resolved]
  - Product use issue [Unknown]
